FAERS Safety Report 9193328 (Version 1)
Quarter: 2013Q1

REPORT INFORMATION
  Report Type: Spontaneous
  Country: US (occurrence: None)
  Receive Date: 20130325
  Receipt Date: 20130325
  Transmission Date: 20140127
  Serious: Yes (Disabling)
  Sender: FDA-Public Use
  Company Number: None

PATIENT
  Age: 37 Year
  Sex: Female
  Weight: 58.97 kg

DRUGS (1)
  1. CIPRO 500 MG COBRA [Suspect]
     Indication: URINARY TRACT INFECTION
     Route: 048
     Dates: start: 20120717, end: 20120718

REACTIONS (21)
  - Muscle atrophy [None]
  - Muscular weakness [None]
  - Muscle spasms [None]
  - Muscle twitching [None]
  - Tendon pain [None]
  - Arthralgia [None]
  - Osteitis [None]
  - Arthralgia [None]
  - Flank pain [None]
  - Musculoskeletal pain [None]
  - Neuropathy peripheral [None]
  - Anxiety [None]
  - Palpitations [None]
  - Malabsorption [None]
  - Coeliac disease [None]
  - Milk soy protein intolerance [None]
  - Food intolerance [None]
  - Alopecia [None]
  - Weight decreased [None]
  - Oropharyngeal pain [None]
  - Otorrhoea [None]
